FAERS Safety Report 4662470-3 (Version None)
Quarter: 2005Q2

REPORT INFORMATION
  Report Type: 
  Country: None (occurrence: None)
  Receive Date: 20050516
  Receipt Date: 20041102
  Transmission Date: 20051028
  Serious: Yes (Disabling)
  Sender: FDA-Public Use
  Company Number: US-ROCHE-385363

PATIENT
  Age: 19 Year
  Sex: Male
  Weight: 86.2 kg

DRUGS (1)
  1. ACCUTANE [Suspect]
     Indication: ACNE
     Route: 048
     Dates: start: 19971015, end: 19980115

REACTIONS (26)
  - ANAEMIA [None]
  - ANAL ABSCESS [None]
  - ANAL FISTULA [None]
  - ASTHENIA [None]
  - BLADDER DISORDER [None]
  - COLITIS [None]
  - COLITIS ULCERATIVE [None]
  - CROHN'S DISEASE [None]
  - DEHYDRATION [None]
  - DEPRESSION [None]
  - DYSURIA [None]
  - ENTEROVESICAL FISTULA [None]
  - FATIGUE [None]
  - FISTULA [None]
  - GASTROINTESTINAL DISORDER [None]
  - HEPATIC ENZYME INCREASED [None]
  - INFLAMMATORY BOWEL DISEASE [None]
  - INFLUENZA [None]
  - INTESTINAL HAEMORRHAGE [None]
  - MUCOSAL HAEMORRHAGE [None]
  - MULTI-ORGAN DISORDER [None]
  - MUSCLE SPASMS [None]
  - ORAL INTAKE REDUCED [None]
  - PAIN [None]
  - PROCTALGIA [None]
  - RECTAL HAEMORRHAGE [None]
